FAERS Safety Report 10160783 (Version 2)
Quarter: 2014Q2

REPORT INFORMATION
  Report Type: Spontaneous
  Country: IL (occurrence: IL)
  Receive Date: 20140508
  Receipt Date: 20140522
  Transmission Date: 20141212
  Serious: Yes (Other)
  Sender: FDA-Public Use
  Company Number: IL-JNJFOC-20140420085

PATIENT
  Age: 56 Year
  Sex: Male

DRUGS (5)
  1. DARUNAVIR [Suspect]
     Indication: HIV INFECTION
     Route: 048
     Dates: start: 2010
  2. TENOFOVIR [Suspect]
     Indication: HIV INFECTION
     Route: 065
     Dates: start: 2010
  3. FTC [Suspect]
     Indication: HIV INFECTION
     Route: 065
     Dates: start: 2010
  4. RITONAVIR [Suspect]
     Indication: HIV INFECTION
     Route: 065
     Dates: start: 2010
  5. MARAVIROC [Suspect]
     Indication: HIV INFECTION
     Route: 065
     Dates: start: 2010

REACTIONS (3)
  - Oral candidiasis [Recovered/Resolved]
  - Cachexia [Recovered/Resolved]
  - Drug resistance [Unknown]
